FAERS Safety Report 23083835 (Version 1)
Quarter: 2023Q4

REPORT INFORMATION
  Report Type: Spontaneous
  Country: TR (occurrence: TR)
  Receive Date: 20231019
  Receipt Date: 20231019
  Transmission Date: 20240109
  Serious: Yes (Other)
  Sender: FDA-Public Use
  Company Number: TR-QUAGEN-2023QUALIT00286

PATIENT
  Age: 55 Year
  Sex: Male

DRUGS (2)
  1. LIDOCAINE [Suspect]
     Active Substance: LIDOCAINE
     Indication: Nerve block
     Route: 065
  2. BUPIVACAINE [Suspect]
     Active Substance: BUPIVACAINE
     Indication: Nerve block
     Route: 065

REACTIONS (3)
  - Deafness bilateral [Recovered/Resolved]
  - Respiratory distress [Recovered/Resolved]
  - Confusional state [Unknown]
